FAERS Safety Report 24791149 (Version 1)
Quarter: 2024Q4

REPORT INFORMATION
  Report Type: Spontaneous
  Country: FR (occurrence: FR)
  Receive Date: 20241230
  Receipt Date: 20241230
  Transmission Date: 20250114
  Serious: Yes (Other)
  Sender: JOHNSON AND JOHNSON
  Company Number: FR-JNJFOC-20241248421

PATIENT
  Sex: Female
  Weight: 44 kg

DRUGS (3)
  1. RYBREVANT [Suspect]
     Active Substance: AMIVANTAMAB-VMJW
     Indication: Non-small cell lung cancer metastatic
     Route: 065
     Dates: end: 20241107
  2. RYBREVANT [Suspect]
     Active Substance: AMIVANTAMAB-VMJW
     Dosage: THE LAST PERFUSION WAS PERFORMED ON 05-DEC-2024
     Route: 065
     Dates: start: 20241205
  3. OSIMERTINIB [Concomitant]
     Active Substance: OSIMERTINIB

REACTIONS (2)
  - Haematotoxicity [Unknown]
  - Thrombocytopenia [Unknown]
